FAERS Safety Report 9152249 (Version 7)
Quarter: 2013Q4

REPORT INFORMATION
  Report Type: Spontaneous
  Country: US (occurrence: US)
  Receive Date: 20130308
  Receipt Date: 20131016
  Transmission Date: 20140711
  Serious: Yes (Death, Hospitalization)
  Sender: FDA-Public Use
  Company Number: US-GLAXOSMITHKLINE-A1011425A

PATIENT
  Age: 53 Year
  Sex: Female

DRUGS (5)
  1. FLOLAN [Suspect]
     Indication: PULMONARY ARTERIAL HYPERTENSION
     Dosage: 30.5NGKM CONTINUOUS
     Route: 042
     Dates: start: 20120820
  2. REVATIO [Concomitant]
  3. LETAIRIS [Concomitant]
  4. TORSEMIDE [Concomitant]
  5. COUMADIN [Concomitant]

REACTIONS (17)
  - Device related infection [Unknown]
  - Right ventricular failure [Unknown]
  - Fluid retention [Unknown]
  - Weight increased [Unknown]
  - Erythema [Unknown]
  - Infusion site erythema [Recovering/Resolving]
  - Infusion site vesicles [Recovering/Resolving]
  - Infusion site pruritus [Recovering/Resolving]
  - Fluid overload [Unknown]
  - Overweight [Unknown]
  - Extracorporeal membrane oxygenation [Unknown]
  - Balloon atrial septostomy [Unknown]
  - Renal failure [Unknown]
  - Cardiac failure chronic [Unknown]
  - Cardiac failure [Fatal]
  - Cardiogenic shock [Fatal]
  - Organ failure [Fatal]
